FAERS Safety Report 7601447-2 (Version None)
Quarter: 2011Q2

REPORT INFORMATION
  Report Type: 
  Country: None (occurrence: None)
  Receive Date: 20110629
  Receipt Date: 20100621
  Transmission Date: 20111010
  Serious: Yes (Hospitalization)
  Sender: FDA-Public Use
  Company Number: WAES 1006USA03269

PATIENT

DRUGS (2)
  1. LIPITOR [Suspect]
     Dosage: PO
     Route: 048
     Dates: start: 20060101
  2. HYZAAR [Suspect]
     Dosage: PO
     Route: 048

REACTIONS (2)
  - RASH [None]
  - JAUNDICE [None]
